FAERS Safety Report 6957651-X (Version None)
Quarter: 2010Q3

REPORT INFORMATION
  Report Type: 
  Country: None (occurrence: None)
  Receive Date: 20100831
  Receipt Date: 20100823
  Transmission Date: 20110219
  Serious: Yes (Hospitalization)
  Sender: FDA-Public Use
  Company Number: US-B.I. PHARMACEUTICALS,INC./RIDGEFIELD-2010-BP-09562BP

PATIENT
  Age: 39 Year
  Sex: Male

DRUGS (1)
  1. VIRAMUNE [Suspect]
     Route: 048
     Dates: start: 20100801, end: 20100801

REACTIONS (2)
  - PYREXIA [None]
  - RASH [None]
